FAERS Safety Report 22601022 (Version 4)
Quarter: 2024Q3

REPORT INFORMATION
  Report Type: Spontaneous
  Country: US (occurrence: US)
  Receive Date: 20230614
  Receipt Date: 20240702
  Transmission Date: 20241016
  Serious: No
  Sender: PFIZER
  Company Number: US-PFIZER INC-202300217522

PATIENT
  Age: 31 Year
  Sex: Female
  Weight: 135 kg

DRUGS (5)
  1. OXBRYTA [Suspect]
     Active Substance: VOXELOTOR
     Indication: Sickle cell anaemia
     Dosage: 500 MG, 1X/DAY
     Route: 048
     Dates: start: 20221006
  2. OXBRYTA [Suspect]
     Active Substance: VOXELOTOR
     Dosage: 3 TABLETS ONCE DAILY
     Route: 048
  3. OXBRYTA [Suspect]
     Active Substance: VOXELOTOR
     Dosage: 3 TABLETS ONCE DAILY
     Route: 048
  4. HYDROXYUREA [Concomitant]
     Active Substance: HYDROXYUREA
     Dosage: 500 MG TAKE ONE MONDAY TO FRIDAY AND THEN I TAKE 2 CAPSULES SAT AND SUN
     Dates: start: 202011
  5. HYDROXYUREA [Concomitant]
     Active Substance: HYDROXYUREA
     Dosage: CHANGED THE AMOUNT THAT BEEN TAKING

REACTIONS (2)
  - Therapeutic response unexpected [Unknown]
  - Off label use [Unknown]

NARRATIVE: CASE EVENT DATE: 20221006
